FAERS Safety Report 6560711-9 (Version None)
Quarter: 2010Q1

REPORT INFORMATION
  Report Type: 
  Country: None (occurrence: None)
  Receive Date: 20100129
  Receipt Date: 20050207
  Transmission Date: 20100710
  Serious: No
  Sender: FDA-Public Use
  Company Number: US-ALLERGAN-200502626

PATIENT
  Age: 58 Year
  Sex: Male

DRUGS (5)
  1. BOTOX [Suspect]
     Indication: HEADACHE
     Dosage: 200UNITS, SINGLE
     Route: 030
     Dates: start: 20041006
  2. BOTOX [Suspect]
     Indication: NECK PAIN
  3. HYDROCODONE [Concomitant]
     Indication: MYALGIA
     Dosage: 7.5MG, PRN
  4. OXYCODONE [Concomitant]
     Indication: MYALGIA
     Dosage: 10MG, PRN
  5. MULTI-VITAMIN [Concomitant]
     Indication: MEDICAL DIET

REACTIONS (5)
  - ATAXIA [None]
  - DYSPHAGIA [None]
  - HEADACHE [None]
  - MUSCULAR WEAKNESS [None]
  - NECK PAIN [None]
